FAERS Safety Report 4706870-1 (Version None)
Quarter: 2005Q3

REPORT INFORMATION
  Report Type: 
  Country: None (occurrence: None)
  Receive Date: 20050706
  Receipt Date: 20040510
  Transmission Date: 20060218
  Serious: Yes (Death, Hospitalization)
  Sender: FDA-Public Use
  Company Number: US-MERCK-0405USA00640

PATIENT
  Age: 45 Year
  Sex: Female
  Weight: 82 kg

DRUGS (21)
  1. VIOXX [Suspect]
     Indication: RHEUMATOID ARTHRITIS
     Route: 048
     Dates: start: 20000401
  2. VIOXX [Suspect]
     Indication: SHOULDER PAIN
     Route: 048
     Dates: start: 20000401
  3. INSULIN HUMAN, ISOPHANE [Concomitant]
     Route: 058
  4. PREDNISONE [Concomitant]
     Route: 065
  5. ZAROXOLYN [Concomitant]
     Route: 065
  6. LIPITOR [Concomitant]
     Route: 065
  7. SPIRONOLACTONE [Concomitant]
     Route: 065
  8. WELLBUTRIN SR [Concomitant]
     Route: 065
  9. PREMPHASE 14/14 [Concomitant]
     Route: 065
  10. ACTONEL [Concomitant]
     Route: 065
  11. PLAQUENIL [Concomitant]
     Route: 065
  12. COLACE [Concomitant]
     Route: 065
  13. K-DUR 10 [Concomitant]
     Route: 065
  14. ULTRAM [Concomitant]
     Route: 048
  15. LASIX [Concomitant]
     Route: 065
  16. AZATHIOPRINE [Concomitant]
     Route: 048
  17. DIFLUCAN [Concomitant]
     Route: 065
  18. ZYBAN [Concomitant]
     Route: 065
  19. ACTIGALL [Concomitant]
     Route: 065
  20. METHOTREXATE [Concomitant]
     Route: 065
     Dates: start: 20000101
  21. CELEBREX [Concomitant]
     Route: 065
     Dates: end: 20000301

REACTIONS (7)
  - BRAIN STEM INFARCTION [None]
  - CARDIAC FAILURE CONGESTIVE [None]
  - CONVULSION [None]
  - LEUKOCYTOSIS [None]
  - RASH [None]
  - RESPIRATORY FAILURE [None]
  - SPLEEN DISORDER [None]
